FAERS Safety Report 10233027 (Version 1)
Quarter: 2014Q2

REPORT INFORMATION
  Report Type: Spontaneous
  Country: US (occurrence: US)
  Receive Date: 20140612
  Receipt Date: 20140612
  Transmission Date: 20141212
  Serious: Yes (Other)
  Sender: FDA-Public Use
  Company Number: US-PFIZER INC-2014157021

PATIENT
  Age: 39 Year
  Sex: Male
  Weight: 73.47 kg

DRUGS (5)
  1. PHOSPHOLINE IODIDE [Suspect]
     Indication: GLAUCOMA
     Dosage: UNK, 2X/DAY
     Route: 047
     Dates: start: 201405
  2. PHOSPHOLINE IODIDE [Suspect]
     Indication: INTRAOCULAR PRESSURE TEST ABNORMAL
  3. ACETAZOLAMIDE [Concomitant]
     Indication: EYE INFLAMMATION
     Dosage: 250 MG, 2X/DAY
  4. VOLTAREN [Concomitant]
     Indication: EYE DISORDER
     Dosage: UNK, 2X/DAY
  5. DECADRON [Concomitant]
     Indication: EYE DISORDER
     Dosage: UNK, 2X/DAY

REACTIONS (1)
  - Intraocular pressure increased [Not Recovered/Not Resolved]
